FAERS Safety Report 26001949 (Version 2)
Quarter: 2025Q4

REPORT INFORMATION
  Report Type: Spontaneous
  Country: GB (occurrence: GB)
  Receive Date: 20251105
  Receipt Date: 20251107
  Transmission Date: 20260117
  Serious: Yes (Hospitalization, Other)
  Sender: ZAMBON
  Company Number: GB-ZAMBON-2025000743

PATIENT

DRUGS (12)
  1. FOSFOMYCIN TROMETHAMINE [Suspect]
     Active Substance: FOSFOMYCIN TROMETHAMINE
     Indication: Urinary tract infection
     Dosage: UNK
  2. LANREOTIDE [Suspect]
     Active Substance: LANREOTIDE
     Indication: Neuroendocrine tumour
     Dosage: 120 MG E28D
     Route: 058
     Dates: start: 20231221
  3. LANREOTIDE [Suspect]
     Active Substance: LANREOTIDE
     Dosage: 120 MG E28D
     Route: 058
     Dates: start: 20241127
  4. LANREOTIDE [Suspect]
     Active Substance: LANREOTIDE
     Dosage: 120 MG E28D
     Route: 058
     Dates: start: 20241223
  5. LANREOTIDE [Suspect]
     Active Substance: LANREOTIDE
     Dosage: 120 MG, E28D (DEEP SUBCUT)
     Route: 058
     Dates: start: 20241127
  6. ISOSORBIDE MONONITRATE [Concomitant]
     Active Substance: ISOSORBIDE MONONITRATE
     Indication: Product used for unknown indication
     Dosage: UNK 10/20 MG
  7. LISINOPRIL [Concomitant]
     Active Substance: LISINOPRIL
     Indication: Product used for unknown indication
     Dosage: UNK
  8. OMEPRAZOLE [Concomitant]
     Active Substance: OMEPRAZOLE
     Indication: Product used for unknown indication
     Dosage: UNK
  9. ALLOPURINOL [Concomitant]
     Active Substance: ALLOPURINOL
     Indication: Product used for unknown indication
     Dosage: UNK
  10. ATORVASTATIN [Concomitant]
     Active Substance: ATORVASTATIN
     Indication: Product used for unknown indication
     Dosage: UNK
  11. MORPHINE SULFATE [Concomitant]
     Active Substance: MORPHINE SULFATE
     Indication: Product used for unknown indication
     Dosage: UNK (4 HOURLY)
  12. Co tenidone [Concomitant]
     Indication: Product used for unknown indication
     Dosage: UNK

REACTIONS (22)
  - Jaundice [Recovering/Resolving]
  - Biliary obstruction [Recovering/Resolving]
  - Dysphagia [Unknown]
  - Lower respiratory tract infection [Unknown]
  - Hepatic neoplasm [Unknown]
  - Urinary tract infection [Recovering/Resolving]
  - Oesophagitis [Unknown]
  - Neuroendocrine tumour [Unknown]
  - Condition aggravated [Unknown]
  - Fall [Not Recovered/Not Resolved]
  - Balance disorder [Not Recovered/Not Resolved]
  - Gait disturbance [Not Recovered/Not Resolved]
  - Blood pressure increased [Not Recovered/Not Resolved]
  - Urinary tract infection [Unknown]
  - Malaise [Recovered/Resolved]
  - Fatigue [Unknown]
  - Pain [Recovered/Resolved]
  - Abdominal pain upper [Unknown]
  - Diarrhoea [Unknown]
  - Asthenia [Unknown]
  - Dizziness [Not Recovered/Not Resolved]
  - Product dose omission issue [Unknown]

NARRATIVE: CASE EVENT DATE: 20240410
